FAERS Safety Report 7333565-0 (Version None)
Quarter: 2011Q1

REPORT INFORMATION
  Report Type: 
  Country: None (occurrence: None)
  Receive Date: 20110304
  Receipt Date: 20110301
  Transmission Date: 20110831
  Serious: Yes (Other)
  Sender: FDA-Public Use
  Company Number: US-ABBOTT-11P-163-0708493-00

PATIENT
  Sex: Male
  Weight: 69.916 kg

DRUGS (2)
  1. COREG [Concomitant]
     Indication: HYPERTENSION
  2. TRICOR [Suspect]
     Indication: BLOOD CHOLESTEROL INCREASED
     Dates: start: 20050101, end: 20110201

REACTIONS (14)
  - GASTRITIS [None]
  - HAEMORRHAGE [None]
  - SPEECH DISORDER [None]
  - ABNORMAL FAECES [None]
  - WEIGHT DECREASED [None]
  - GASTRIC NEOPLASM [None]
  - GASTRIC PERFORATION [None]
  - LYMPHOMA [None]
  - ABDOMINAL PAIN UPPER [None]
  - HYPOAESTHESIA [None]
  - GASTRIC HAEMORRHAGE [None]
  - BLOOD IRON DECREASED [None]
  - YELLOW SKIN [None]
  - ASTHENIA [None]
